FAERS Safety Report 10239075 (Version 1)
Quarter: 2014Q2

REPORT INFORMATION
  Report Type: Spontaneous
  Country: SE (occurrence: SE)
  Receive Date: 20140616
  Receipt Date: 20140616
  Transmission Date: 20141212
  Serious: Yes (Other)
  Sender: FDA-Public Use
  Company Number: SE-ACTAVIS-2014-12527

PATIENT
  Sex: Female

DRUGS (1)
  1. LORATADINE [Suspect]
     Indication: RASH
     Dosage: 10 MG, 3 TABLETS QAM
     Route: 065
     Dates: start: 20140525, end: 20140602

REACTIONS (6)
  - Loss of consciousness [Unknown]
  - Fatigue [Unknown]
  - Dizziness [Unknown]
  - Nausea [Unknown]
  - Hypersomnia [Unknown]
  - Feeling abnormal [Unknown]
